FAERS Safety Report 8510147 (Version 2)
Quarter: 2013Q1

REPORT INFORMATION
  Report Type: Spontaneous
  Country: US (occurrence: US)
  Receive Date: 20120413
  Receipt Date: 20130305
  Transmission Date: 20140127
  Serious: Yes (Hospitalization, Other)
  Sender: FDA-Public Use
  Company Number: US-GENZYME-FLUD-1001463

PATIENT
  Age: 53 Year
  Sex: Female
  Weight: 77.91 kg

DRUGS (4)
  1. FLUDARA [Suspect]
     Indication: CHRONIC LYMPHOCYTIC LEUKAEMIA RECURRENT
     Dosage: 46 MG, DAY 1-3 PER CYCLE
     Route: 042
     Dates: start: 20111214, end: 20120511
  2. CYTOXAN [Suspect]
     Indication: CHRONIC LYMPHOCYTIC LEUKAEMIA
     Dosage: 460 MG, DAY 1-3 PER CYCLE
     Route: 042
     Dates: start: 20110516, end: 20120116
  3. CYTOXAN [Suspect]
     Dosage: 460 MG, 3X/W
     Route: 042
     Dates: start: 20111214, end: 20120511
  4. RITUXIMAB [Suspect]
     Indication: CHRONIC LYMPHOCYTIC LEUKAEMIA
     Dosage: 920 MG, DAY 1 EVERY CYCLE
     Route: 042
     Dates: start: 20100119, end: 20120112

REACTIONS (6)
  - Dizziness [Recovered/Resolved]
  - Hypotension [Recovered/Resolved]
  - Basal cell carcinoma [Unknown]
  - Febrile neutropenia [Recovered/Resolved]
  - Rash [Recovered/Resolved]
  - Tumour lysis syndrome [Recovered/Resolved]
